FAERS Safety Report 9705502 (Version 2)
Quarter: 2014Q2

REPORT INFORMATION
  Report Type: Report from Study
  Country: US (occurrence: US)
  Receive Date: 20131122
  Receipt Date: 20140509
  Transmission Date: 20141212
  Serious: Yes (Other)
  Sender: FDA-Public Use
  Company Number: US-US-EMD SERONO, INC.-7250643

PATIENT
  Age: 57 Year
  Sex: Female

DRUGS (2)
  1. REBIF [Suspect]
     Indication: MULTIPLE SCLEROSIS
     Route: 058
     Dates: start: 20061108
  2. REBIF [Suspect]
     Route: 058

REACTIONS (5)
  - Glaucoma [Recovering/Resolving]
  - Blindness unilateral [Recovering/Resolving]
  - Intraocular pressure increased [Recovering/Resolving]
  - Device occlusion [Recovering/Resolving]
  - Vomiting [Recovering/Resolving]
